FAERS Safety Report 26077419 (Version 1)
Quarter: 2025Q4

REPORT INFORMATION
  Report Type: Spontaneous
  Country: US (occurrence: US)
  Receive Date: 20251121
  Receipt Date: 20251121
  Transmission Date: 20260118
  Serious: No
  Sender: NOVO NORDISK
  Company Number: US-NOVOPROD-1335864

PATIENT
  Sex: Male

DRUGS (5)
  1. TRESIBA [Suspect]
     Active Substance: INSULIN DEGLUDEC
     Indication: Product used for unknown indication
     Dosage: 40 IU, QD
     Route: 058
  2. TOPIRAMATE [Suspect]
     Active Substance: TOPIRAMATE
     Indication: Product used for unknown indication
     Dosage: QD
     Route: 048
     Dates: start: 20210601
  3. HUMALOG [Concomitant]
     Active Substance: INSULIN LISPRO
     Indication: Product used for unknown indication
     Dosage: PRN
     Route: 058
  4. LISINOPRIL [Concomitant]
     Active Substance: LISINOPRIL
     Indication: Product used for unknown indication
     Dosage: 10 MG, QD
     Route: 048
  5. WEGOVY [Concomitant]
     Active Substance: SEMAGLUTIDE
     Indication: Product used for unknown indication
     Dosage: UNK
     Route: 058
     Dates: start: 20210816

REACTIONS (2)
  - Oral pain [Unknown]
  - Abdominal discomfort [Unknown]
